FAERS Safety Report 6696063-3 (Version None)
Quarter: 2010Q2

REPORT INFORMATION
  Report Type: 
  Country: None (occurrence: None)
  Receive Date: 20100426
  Receipt Date: 20100416
  Transmission Date: 20101027
  Serious: Yes (Hospitalization)
  Sender: FDA-Public Use
  Company Number: PHHY2010DK24264

PATIENT
  Sex: Female

DRUGS (1)
  1. CERTICAN [Suspect]
     Indication: LUNG TRANSPLANT
     Dosage: 0.25 MG, BID
     Dates: start: 20090401, end: 20100120

REACTIONS (2)
  - BONE MARROW DISORDER [None]
  - PANCYTOPENIA [None]
